FAERS Safety Report 24340458 (Version 1)
Quarter: 2024Q3

REPORT INFORMATION
  Report Type: Spontaneous
  Country: CA (occurrence: CA)
  Receive Date: 20240919
  Receipt Date: 20240919
  Transmission Date: 20241017
  Serious: Yes (Other)
  Sender: TEVA
  Company Number: CA-TEVA-VS-3243474

PATIENT
  Age: 83 Year
  Sex: Female

DRUGS (1)
  1. IMATINIB MESYLATE [Suspect]
     Active Substance: IMATINIB MESYLATE
     Indication: C-kit gene mutation
     Route: 065

REACTIONS (4)
  - Lichenoid keratosis [Recovered/Resolved]
  - Drug intolerance [Recovered/Resolved]
  - Skin reaction [Recovered/Resolved]
  - Rash maculo-papular [Recovered/Resolved]
